FAERS Safety Report 10234445 (Version 1)
Quarter: 2014Q2

REPORT INFORMATION
  Report Type: Spontaneous
  Country: GB (occurrence: GB)
  Receive Date: 20140613
  Receipt Date: 20140613
  Transmission Date: 20141212
  Serious: Yes (Other)
  Sender: FDA-Public Use
  Company Number: GB-DRREDDYS-GER/UKI/14/0041011

PATIENT
  Age: 43 Year
  Sex: Male

DRUGS (7)
  1. AMLODIPINE [Suspect]
     Indication: PRODUCT USED FOR UNKNOWN INDICATION
     Dates: end: 20131029
  2. DEPAKOTE [Suspect]
     Indication: PRODUCT USED FOR UNKNOWN INDICATION
  3. VALPROATE SEMISODIUM [Suspect]
     Indication: PRODUCT USED FOR UNKNOWN INDICATION
     Dates: end: 20131029
  4. ZAPONEX [Suspect]
     Indication: SCHIZOPHRENIA
     Dates: start: 20140328
  5. ZAPONEX [Suspect]
     Route: 048
     Dates: start: 20100929, end: 20131014
  6. ZAPONEX [Suspect]
     Route: 048
     Dates: start: 20131029, end: 20140321
  7. PIRENZEPINE [Concomitant]
     Indication: PRODUCT USED FOR UNKNOWN INDICATION

REACTIONS (7)
  - Hepatitis C [Not Recovered/Not Resolved]
  - Leukopenia [Recovered/Resolved]
  - Neutropenia [Recovered/Resolved]
  - Neutrophil count decreased [Recovered/Resolved]
  - Platelet count decreased [Not Recovered/Not Resolved]
  - Splenomegaly [Not Recovered/Not Resolved]
  - Thrombocytopenia [Not Recovered/Not Resolved]
